FAERS Safety Report 16309533 (Version 3)
Quarter: 2019Q4

REPORT INFORMATION
  Report Type: Spontaneous
  Country: AU (occurrence: AU)
  Receive Date: 20190514
  Receipt Date: 20191018
  Transmission Date: 20200122
  Serious: Yes (Other)
  Sender: FDA-Public Use
  Company Number: AU-EMD SERONO-9089931

PATIENT
  Age: 40 Year
  Sex: Female

DRUGS (2)
  1. MAVENCLAD [Suspect]
     Active Substance: CLADRIBINE
     Indication: RELAPSING-REMITTING MULTIPLE SCLEROSIS
     Dosage: FIRST WEEK THERAPY
     Dates: start: 20190128
  2. MAVENCLAD [Suspect]
     Active Substance: CLADRIBINE
     Dosage: SECOND WEEK THERAPY
     Dates: start: 20190219

REACTIONS (5)
  - Depression [Recovered/Resolved]
  - Alopecia [Recovering/Resolving]
  - Suicidal ideation [Recovered/Resolved]
  - Nausea [Unknown]
  - Abdominal pain upper [Unknown]

NARRATIVE: CASE EVENT DATE: 201902
